FAERS Safety Report 22645444 (Version 1)
Quarter: 2023Q2

REPORT INFORMATION
  Report Type: Spontaneous
  Country: DE (occurrence: DE)
  Receive Date: 20230627
  Receipt Date: 20230627
  Transmission Date: 20230722
  Serious: Yes (Other)
  Sender: FDA-Public Use
  Company Number: DE-AMERICAN REGENT INC-2023001525

PATIENT
  Sex: Male

DRUGS (1)
  1. FERINJECT [Suspect]
     Active Substance: FERRIC CARBOXYMALTOSE
     Indication: Anaemia
     Dosage: UNK, EVERY 3-4 MONTHS
     Dates: start: 2021

REACTIONS (2)
  - Haematochezia [Unknown]
  - Haematuria [Unknown]

NARRATIVE: CASE EVENT DATE: 20210101
